FAERS Safety Report 9919695 (Version 1)
Quarter: 2014Q1

REPORT INFORMATION
  Report Type: Spontaneous
  Country: US (occurrence: US)
  Receive Date: 20140224
  Receipt Date: 20140224
  Transmission Date: 20141002
  Serious: Yes (Life-Threatening, Hospitalization, Other)
  Sender: FDA-Public Use
  Company Number: US-BRISTOL-MYERS SQUIBB COMPANY-20198172

PATIENT
  Age: 84 Year
  Sex: Male

DRUGS (1)
  1. YERVOY [Suspect]
     Dosage: 4 DOSES

REACTIONS (3)
  - Obstructive airways disorder [Unknown]
  - Lymphadenopathy [Unknown]
  - Infection [Unknown]
